FAERS Safety Report 12568974 (Version 1)
Quarter: 2016Q3

REPORT INFORMATION
  Report Type: Report from Study
  Country: NL (occurrence: NL)
  Receive Date: 20160719
  Receipt Date: 20160719
  Transmission Date: 20161109
  Serious: Yes (Other)
  Sender: FDA-Public Use
  Company Number: NL-ACCORD-042370

PATIENT
  Age: 39 Year
  Sex: Male

DRUGS (2)
  1. CISPLATIN. [Suspect]
     Active Substance: CISPLATIN
     Indication: TESTICULAR CANCER METASTATIC
     Dosage: DAYS 1-5
  2. ETOPOSIDE. [Suspect]
     Active Substance: ETOPOSIDE
     Indication: TESTICULAR CANCER METASTATIC
     Dosage: DAYS 1-5

REACTIONS (1)
  - Pulmonary embolism [Recovered/Resolved]
